FAERS Safety Report 24289087 (Version 4)
Quarter: 2024Q4

REPORT INFORMATION
  Report Type: Report from Study
  Country: US (occurrence: US)
  Receive Date: 20240906
  Receipt Date: 20241001
  Transmission Date: 20250115
  Serious: Yes (Other)
  Sender: ABBVIE
  Company Number: US-ABBVIE-5906151

PATIENT
  Age: 68 Year
  Sex: Female
  Weight: 81 kg

DRUGS (22)
  1. RINVOQ [Suspect]
     Active Substance: UPADACITINIB
     Indication: Arthritis reactive
     Route: 048
     Dates: start: 20230508, end: 20240807
  2. RINVOQ [Suspect]
     Active Substance: UPADACITINIB
     Indication: Arthritis reactive
     Route: 048
     Dates: start: 20240915
  3. DOCUSATE SODIUM\SENNOSIDE A\SENNOSIDE B [Concomitant]
     Active Substance: DOCUSATE SODIUM\SENNOSIDE A\SENNOSIDE B
     Indication: Product used for unknown indication
     Route: 048
  4. IMODIUM A-D [Concomitant]
     Active Substance: LOPERAMIDE HYDROCHLORIDE
     Indication: Product used for unknown indication
     Dosage: PRN?CAPLET
     Route: 048
  5. LIDOCAINE [Concomitant]
     Active Substance: LIDOCAINE
     Indication: Product used for unknown indication
     Dosage: TOPICAL FILM
     Route: 061
  6. LOVENOX [Concomitant]
     Active Substance: ENOXAPARIN SODIUM
     Indication: Thrombosis prophylaxis
     Dosage: 40 MG= 0.4 ML
     Route: 058
  7. MORPHINE [Concomitant]
     Active Substance: MORPHINE
     Indication: Product used for unknown indication
     Dosage: PRN?IV PUSH?2 MG = 0.5 ML
  8. MORPHINE [Concomitant]
     Active Substance: MORPHINE
     Indication: Product used for unknown indication
     Dosage: PRN?IV PUSH?4 MG = 1 ML
  9. ONDANSETRON [Concomitant]
     Active Substance: ONDANSETRON
     Indication: Nausea
     Dosage: PRN ?IV PUSH ?4 MG = 2 ML?EVERY SIX HOURS AS NEEDED FOR NAUSEA
     Route: 048
  10. ACETAMINOPHEN [Concomitant]
     Active Substance: ACETAMINOPHEN
     Indication: Pain
     Dosage: 2 TABLET , EVERY FOUR HOURS AS NEEDED FOR PAIN
     Route: 048
  11. ATIVAN [Concomitant]
     Active Substance: LORAZEPAM
     Indication: Product used for unknown indication
     Dosage: INTRAVENOUS PUSH?EVERY BEDTIME?0.5 MG=0.25 ML
  12. CLINDAMYCIN [Concomitant]
     Active Substance: CLINDAMYCIN
     Indication: Product used for unknown indication
     Dosage: 900 MG=50 ML?INTRAVENOUS PIGGYBACK
  13. CLINDAMYCIN [Concomitant]
     Active Substance: CLINDAMYCIN
     Indication: Product used for unknown indication
     Dosage: TIME INTERVAL: 0.33333333 DAYS
     Route: 048
  14. PLAQUENIL [Concomitant]
     Active Substance: HYDROXYCHLOROQUINE SULFATE
     Indication: Product used for unknown indication
     Route: 048
  15. POTASSIUM CHLORIDE [Concomitant]
     Active Substance: POTASSIUM CHLORIDE
     Indication: Product used for unknown indication
     Dosage: 10 MEQ = 100 ML?IV PIGGYBACK?Q1H
     Route: 048
  16. SODIUM CHLORIDE [Concomitant]
     Active Substance: SODIUM CHLORIDE
     Indication: Product used for unknown indication
     Dosage: INTRAVENOUS SOLUTION?1000 ML, IV CONTINUOUS INFUSION
  17. TRAMADOL [Concomitant]
     Active Substance: TRAMADOL
     Indication: Product used for unknown indication
     Dosage: PRN
     Route: 048
  18. ALENDRONATE [Concomitant]
     Active Substance: ALENDRONATE SODIUM
     Indication: Product used for unknown indication
     Dosage: 3 REFILLS
     Route: 048
  19. CYANOCOBALAMIN [Concomitant]
     Active Substance: CYANOCOBALAMIN
     Indication: Product used for unknown indication
     Dosage: DOSAGE: 1000 MG/ML INJECTABLE SOLUTIONS?11 REFILLS
     Route: 030
  20. PROTONIX [Concomitant]
     Active Substance: PANTOPRAZOLE SODIUM
     Indication: Gastrointestinal disorder prophylaxis
  21. MELOXICAM [Concomitant]
     Active Substance: MELOXICAM
     Indication: Product used for unknown indication
  22. FOLIC ACID [Concomitant]
     Active Substance: FOLIC ACID
     Indication: Product used for unknown indication
     Route: 048

REACTIONS (59)
  - Sepsis [Recovering/Resolving]
  - Viral infection [Unknown]
  - Nodule [Unknown]
  - Swelling [Recovering/Resolving]
  - Tenderness [Unknown]
  - Induration [Unknown]
  - Leukocytosis [Recovered/Resolved]
  - Peripheral swelling [Unknown]
  - Pain in extremity [Unknown]
  - Unevaluable event [Unknown]
  - Norovirus infection [Recovered/Resolved]
  - Skin warm [Unknown]
  - Dry skin [Unknown]
  - Staphylococcal infection [Unknown]
  - Nausea [Unknown]
  - Vomiting [Unknown]
  - Retching [Not Recovered/Not Resolved]
  - Fluid retention [Unknown]
  - Diarrhoea [Unknown]
  - Osteoporosis [Unknown]
  - Hypothyroidism [Unknown]
  - Subcutaneous abscess [Unknown]
  - Gastroenteritis [Unknown]
  - Dehydration [Unknown]
  - Hypertension [Unknown]
  - Blood urea decreased [Unknown]
  - Blood urea nitrogen/creatinine ratio increased [Unknown]
  - Blood calcium decreased [Unknown]
  - Platelet count increased [Unknown]
  - Glomerular filtration rate decreased [Unknown]
  - Chronic kidney disease [Unknown]
  - Blood albumin decreased [Unknown]
  - Albumin globulin ratio decreased [Unknown]
  - Blood bilirubin increased [Unknown]
  - Basophil count decreased [Unknown]
  - Eosinophil count decreased [Unknown]
  - Haemoglobin decreased [Unknown]
  - Granulocyte count decreased [Unknown]
  - Lymphocyte count decreased [Unknown]
  - Monocyte count decreased [Unknown]
  - Neutrophil count increased [Unknown]
  - Pyrexia [Unknown]
  - Erythema [Recovering/Resolving]
  - Chest wall abscess [Unknown]
  - Acute kidney injury [Recovered/Resolved]
  - Blood potassium decreased [Unknown]
  - Carbon dioxide decreased [Unknown]
  - Skin irritation [Unknown]
  - Incision site swelling [Unknown]
  - Haematocrit decreased [Unknown]
  - Red blood cell count decreased [Unknown]
  - Blood urea increased [Unknown]
  - Blood urea nitrogen/creatinine ratio decreased [Unknown]
  - Blood chloride increased [Unknown]
  - White blood cell count increased [Unknown]
  - Blood glucose increased [Unknown]
  - Skin mass [Unknown]
  - Acne [Recovered/Resolved]
  - Furuncle [Unknown]

NARRATIVE: CASE EVENT DATE: 20240731
